FAERS Safety Report 7729483-6 (Version None)
Quarter: 2011Q3

REPORT INFORMATION
  Report Type: 
  Country: None (occurrence: None)
  Receive Date: 20110906
  Receipt Date: 20110820
  Transmission Date: 20111222
  Serious: No
  Sender: FDA-Public Use
  Company Number: US-JNJFOC-20110609520

PATIENT
  Age: 23 Year
  Sex: Male
  Weight: 47.17 kg

DRUGS (8)
  1. AN UNKNOWN MEDICATION [Concomitant]
     Indication: SCHIZOPHRENIA
     Route: 065
  2. COGENTIN [Concomitant]
     Route: 065
  3. INVEGA SUSTENNA [Suspect]
     Indication: SCHIZOPHRENIA
     Route: 030
     Dates: start: 20110615
  4. PAXIL [Concomitant]
     Indication: SCHIZOPHRENIA
     Route: 065
  5. ZYPREXA ZYDIS [Concomitant]
     Indication: SCHIZOPHRENIA
     Dosage: AT BED TIME
     Route: 065
  6. INVEGA SUSTENNA [Suspect]
     Indication: PSYCHOTIC DISORDER
     Route: 030
     Dates: start: 20110615
  7. INVEGA SUSTENNA [Suspect]
     Route: 030
     Dates: start: 20110428
  8. INVEGA SUSTENNA [Suspect]
     Route: 030
     Dates: start: 20110428

REACTIONS (5)
  - SWOLLEN TONGUE [None]
  - PRODUCT QUALITY ISSUE [None]
  - JOINT STIFFNESS [None]
  - EXTRAPYRAMIDAL DISORDER [None]
  - MALAISE [None]
